FAERS Safety Report 19695821 (Version 1)
Quarter: 2021Q3

REPORT INFORMATION
  Report Type: Spontaneous
  Country: US (occurrence: US)
  Receive Date: 20210813
  Receipt Date: 20210813
  Transmission Date: 20211014
  Serious: No
  Sender: FDA-Public Use
  Company Number: US-ACCORD-231418

PATIENT

DRUGS (1)
  1. LEVOTHYROXINE. [Suspect]
     Active Substance: LEVOTHYROXINE
     Indication: HYPOTHYROIDISM
     Dosage: STRENGTH: 50 UG

REACTIONS (7)
  - Constipation [Unknown]
  - Product substitution issue [Unknown]
  - Onychoclasis [Unknown]
  - Dry skin [Unknown]
  - Weight increased [Unknown]
  - Drug ineffective [Unknown]
  - Alopecia [Unknown]
